FAERS Safety Report 7617977-3 (Version None)
Quarter: 2011Q3

REPORT INFORMATION
  Report Type: 
  Country: None (occurrence: None)
  Receive Date: 20110718
  Receipt Date: 20110708
  Transmission Date: 20111222
  Serious: No
  Sender: FDA-Public Use
  Company Number: JP-GENZYME-THYM-1002580

PATIENT
  Sex: Male
  Weight: 84 kg

DRUGS (9)
  1. GLIMEPIRIDE [Concomitant]
     Indication: TYPE 2 DIABETES MELLITUS
     Dosage: 1 MG, QD
     Route: 065
     Dates: start: 20110517
  2. HYDROCORTISONE SODIUM SUCCINATE [Concomitant]
     Indication: PREMEDICATION
     Dosage: 100 MG, UNK
     Route: 065
     Dates: start: 20110627, end: 20110703
  3. IBUPROFEN [Concomitant]
     Indication: PREMEDICATION
     Dosage: 200 MG, UNK
     Route: 065
     Dates: start: 20110627, end: 20110703
  4. METHYLPREDNISOLONE [Concomitant]
     Indication: IMMUNOSUPPRESSION
     Dosage: 8 MG, BID
     Route: 065
     Dates: start: 20110109
  5. CYCLOSPORINE [Concomitant]
     Indication: IMMUNOSUPPRESSION
     Dosage: 300 MG, BID
     Route: 065
     Dates: start: 20101219
  6. THYMOGLOBULIN [Suspect]
     Indication: KIDNEY TRANSPLANT REJECTION
     Dosage: 125 MG, QD
     Route: 042
     Dates: start: 20110627, end: 20110703
  7. DEXCHLORPHENIRAMINE MALEATE [Concomitant]
     Indication: PREMEDICATION
     Dosage: 2 MG, UNK
     Route: 065
     Dates: start: 20110627, end: 20110703
  8. MYCOPHENOLATE MOFETIL [Concomitant]
     Indication: IMMUNOSUPPRESSION
     Dosage: 2000 MG, BID
     Route: 065
     Dates: start: 20101219
  9. VILDAGLIPTIN [Concomitant]
     Indication: TYPE 2 DIABETES MELLITUS
     Dosage: 100 MG, BID
     Route: 065
     Dates: start: 20110419

REACTIONS (1)
  - PHLEBITIS [None]
